FAERS Safety Report 21757182 (Version 1)
Quarter: 2022Q4

REPORT INFORMATION
  Report Type: Spontaneous
  Country: US (occurrence: US)
  Receive Date: 20221220
  Receipt Date: 20221220
  Transmission Date: 20230113
  Serious: No
  Sender: FDA-Public Use
  Company Number: US-BAUSCHBL-2022BNL002846

PATIENT
  Age: 51 Year
  Sex: Male

DRUGS (6)
  1. LOTEMAX SM [Suspect]
     Active Substance: LOTEPREDNOL ETABONATE
     Indication: Eye infection
     Dosage: AS DIRECTED
     Route: 047
  2. LOTEMAX SM [Suspect]
     Active Substance: LOTEPREDNOL ETABONATE
     Indication: Product use in unapproved indication
  3. BESIVANCE [Suspect]
     Active Substance: BESIFLOXACIN
     Indication: Eye infection
     Dosage: AS DIRECTED
     Route: 047
  4. OFLOXACIN [Suspect]
     Active Substance: OFLOXACIN
     Indication: Eye infection
     Dosage: AS DIRECTED
     Route: 047
  5. SYSTANE (HYPROMELLOSE 2910 (4000 MPA.S)) [Suspect]
     Active Substance: HYPROMELLOSE 2910 (4000 MPA.S)
     Indication: Eye infection
     Dosage: AS DIRECTED
     Route: 047
  6. LATANOPROST [Concomitant]
     Active Substance: LATANOPROST
     Indication: Product used for unknown indication
     Route: 047

REACTIONS (4)
  - Swelling of eyelid [Unknown]
  - Drug hypersensitivity [Unknown]
  - Product prescribing issue [Unknown]
  - Product use in unapproved indication [Unknown]

NARRATIVE: CASE EVENT DATE: 20220101
